FAERS Safety Report 4924096-3 (Version None)
Quarter: 2006Q1

REPORT INFORMATION
  Report Type: 
  Country: None (occurrence: None)
  Receive Date: 20060227
  Receipt Date: 20051114
  Transmission Date: 20060701
  Serious: Yes (Other)
  Sender: FDA-Public Use
  Company Number: US-GLAXOSMITHKLINE-A0582144A

PATIENT
  Age: 45 Year
  Sex: Female
  Weight: 65.9 kg

DRUGS (2)
  1. WELLBUTRIN XL [Suspect]
     Indication: DEPRESSION
     Dosage: 300MG PER DAY
     Route: 048
     Dates: start: 20050701
  2. NO CONCURRENT MEDICATION [Concomitant]

REACTIONS (1)
  - RASH GENERALISED [None]
